FAERS Safety Report 21999289 (Version 1)
Quarter: 2023Q1

REPORT INFORMATION
  Report Type: Spontaneous
  Country: US (occurrence: US)
  Receive Date: 20230216
  Receipt Date: 20230216
  Transmission Date: 20230418
  Serious: Yes (Disabling, Other)
  Sender: FDA-Public Use
  Company Number: US-REGENERON PHARMACEUTICALS, INC.-2023-029214

PATIENT
  Sex: Female

DRUGS (2)
  1. EYLEA [Suspect]
     Active Substance: AFLIBERCEPT
     Indication: Age-related macular degeneration
     Dosage: INTO LEFT EYE
     Dates: start: 20221228, end: 20221228
  2. EYLEA [Suspect]
     Active Substance: AFLIBERCEPT
     Dosage: INTO LEFT EYE
     Dates: start: 20230125, end: 20230125

REACTIONS (2)
  - Blindness unilateral [Unknown]
  - Bacterial endophthalmitis [Unknown]

NARRATIVE: CASE EVENT DATE: 20230128
